FAERS Safety Report 4520712-9 (Version None)
Quarter: 2004Q4

REPORT INFORMATION
  Report Type: 
  Country: None (occurrence: None)
  Receive Date: 20041207
  Receipt Date: 20041201
  Transmission Date: 20050328
  Serious: Yes (Life-Threatening, Hospitalization)
  Sender: FDA-Public Use
  Company Number: US-MERCK-0412USA00243

PATIENT
  Age: 48 Year
  Sex: Female

DRUGS (10)
  1. VIOXX [Suspect]
     Indication: OSTEOARTHRITIS
     Route: 048
     Dates: start: 19990101, end: 20041001
  2. LEXAPRO [Concomitant]
     Route: 065
  3. MICARDIS [Concomitant]
     Route: 065
  4. MAXZIDE [Concomitant]
     Route: 065
  5. TRAZODONE HYDROCHLORIDE [Concomitant]
     Route: 065
  6. LASIX [Concomitant]
     Route: 065
  7. SKELAXIN [Concomitant]
     Route: 065
  8. KLOR-CON [Concomitant]
     Route: 065
  9. PREVACID [Concomitant]
     Route: 065
  10. BUSPAR [Concomitant]
     Route: 065

REACTIONS (2)
  - CARDIAC FAILURE CONGESTIVE [None]
  - LOSS OF CONSCIOUSNESS [None]
